FAERS Safety Report 7963998-0 (Version None)
Quarter: 2011Q4

REPORT INFORMATION
  Report Type: 
  Country: None (occurrence: None)
  Receive Date: 20111208
  Receipt Date: 20111128
  Transmission Date: 20120403
  Serious: Yes (Hospitalization, Other)
  Sender: FDA-Public Use
  Company Number: US-BAYER-2011-053616

PATIENT
  Age: 37 Year
  Sex: Female
  Weight: 124.72 kg

DRUGS (4)
  1. YASMIN [Suspect]
     Indication: CONTRACEPTION
     Dosage: UNK
     Dates: start: 20080107, end: 20080719
  2. YASMIN [Suspect]
     Dosage: UNK
     Dates: start: 20090227, end: 20090630
  3. DROSPIRENONE AND ETHINYL ESTRADIOL [Suspect]
     Indication: CONTRACEPTION
     Dosage: UNK
     Dates: start: 20080719, end: 20090227
  4. METFORMIN HCL [Concomitant]
     Indication: WEIGHT CONTROL
     Dosage: 500 MG, UNK

REACTIONS (1)
  - PULMONARY EMBOLISM [None]
